FAERS Safety Report 15729810 (Version 2)
Quarter: 2019Q1

REPORT INFORMATION
  Report Type: Report from Study
  Country: LT (occurrence: LT)
  Receive Date: 20181217
  Receipt Date: 20190211
  Transmission Date: 20190417
  Serious: Yes (Other)
  Sender: FDA-Public Use
  Company Number: LT-PFIZER INC-2018517221

PATIENT
  Age: 46 Year
  Sex: Female

DRUGS (3)
  1. BEVACIZUMAB. [Suspect]
     Active Substance: BEVACIZUMAB
     Indication: CERVIX CARCINOMA
     Dosage: UNK, EVERY 3 WEEKS
     Route: 065
  2. CISPLATIN. [Suspect]
     Active Substance: CISPLATIN
     Indication: CERVIX CARCINOMA
     Dosage: UNK UNK, EVERY 3 WEEKS
     Route: 065
  3. PACLITAXEL. [Suspect]
     Active Substance: PACLITAXEL
     Indication: CERVIX CARCINOMA
     Dosage: UNK, EVERY 3 WEEKS
     Route: 065

REACTIONS (8)
  - Hypertension [Unknown]
  - Proteinuria [Unknown]
  - Polyneuropathy [Unknown]
  - Haematotoxicity [Unknown]
  - Bone pain [Unknown]
  - Essential hypertension [Unknown]
  - Urogenital fistula [Unknown]
  - Condition aggravated [Unknown]
